FAERS Safety Report 4853580-6 (Version None)
Quarter: 2005Q4

REPORT INFORMATION
  Report Type: 
  Country: None (occurrence: None)
  Receive Date: 20051212
  Receipt Date: 20051130
  Transmission Date: 20060501
  Serious: Yes (Other)
  Sender: FDA-Public Use
  Company Number: 2005122988

PATIENT
  Age: 55 Year
  Sex: Male

DRUGS (9)
  1. NIFEDIPINE [Suspect]
     Indication: HYPERTENSION
     Dosage: 30 MG (DAILY), ORAL
     Route: 048
     Dates: start: 20040914, end: 20040915
  2. ALLOPURINOL [Concomitant]
  3. ATACAND [Concomitant]
  4. ATENOLOL [Concomitant]
  5. CYCLOSPORINE [Concomitant]
  6. FUROSEMIDE [Concomitant]
  7. RABEPRAZOLE SODIUM [Concomitant]
  8. PREDNISONE [Concomitant]
  9. HYDROCHLOROTHIAZIDE [Concomitant]

REACTIONS (3)
  - ARTHRALGIA [None]
  - ARTHROPATHY [None]
  - EPISTAXIS [None]
